FAERS Safety Report 4530058-0 (Version None)
Quarter: 2004Q4

REPORT INFORMATION
  Report Type: 
  Country: None (occurrence: None)
  Receive Date: 20041215
  Receipt Date: 20041215
  Transmission Date: 20050328
  Serious: Yes (Hospitalization)
  Sender: FDA-Public Use
  Company Number: None

PATIENT
  Sex: Male
  Weight: 42.9 kg

DRUGS (6)
  1. METHOTREXATE [Suspect]
     Indication: PRECURSOR T-LYMPHOBLASTIC LYMPHOMA/LEUKAEMIA
     Dosage: 12 MG IT ONCE ON 12/6
     Route: 037
     Dates: start: 20041206
  2. CYTARABINE [Suspect]
     Indication: PRECURSOR T-LYMPHOBLASTIC LYMPHOMA/LEUKAEMIA
     Dosage: 100MG IV ON 12/6 + 12/7
     Route: 042
     Dates: start: 20041206, end: 20041207
  3. BACTRIM [Concomitant]
  4. CEFEPIME [Concomitant]
  5. ZANTAC [Concomitant]
  6. NYSTATIN [Concomitant]

REACTIONS (11)
  - APHASIA [None]
  - ASTHENIA [None]
  - BACTERAEMIA [None]
  - FACIAL PALSY [None]
  - HEADACHE [None]
  - HYPOAESTHESIA [None]
  - NAUSEA [None]
  - NEUROLOGICAL SYMPTOM [None]
  - PYREXIA [None]
  - SEPSIS [None]
  - SPEECH DISORDER [None]
